FAERS Safety Report 9311981 (Version 3)
Quarter: 2013Q2

REPORT INFORMATION
  Report Type: Spontaneous
  Country: DE (occurrence: DE)
  Receive Date: 20130528
  Receipt Date: 20130625
  Transmission Date: 20140414
  Serious: Yes (Other)
  Sender: FDA-Public Use
  Company Number: DE-AMGEN-DEUSP2013037070

PATIENT
  Age: 82 Year
  Sex: Male
  Weight: 72 kg

DRUGS (4)
  1. MIMPARA [Suspect]
     Indication: HYPERPARATHYROIDISM PRIMARY
     Dosage: 90 MG, QD
     Route: 048
     Dates: start: 201205
  2. XGEVA [Concomitant]
     Indication: METASTASES TO BONE
     Dosage: UNK
     Dates: start: 201304
  3. CALCIUM [Concomitant]
  4. VITAMIN D                          /00107901/ [Concomitant]

REACTIONS (2)
  - Metastases to bone [Not Recovered/Not Resolved]
  - Gastrointestinal disorder [Recovered/Resolved]
